FAERS Safety Report 6593731-9 (Version None)
Quarter: 2010Q1

REPORT INFORMATION
  Report Type: 
  Country: None (occurrence: None)
  Receive Date: 20100222
  Receipt Date: 20090126
  Transmission Date: 20100710
  Serious: No
  Sender: FDA-Public Use
  Company Number: US-BRISTOL-MYERS SQUIBB COMPANY-14483580

PATIENT
  Age: 45 Year
  Sex: Male
  Weight: 95 kg

DRUGS (14)
  1. ORENCIA [Suspect]
     Indication: RHEUMATOID ARTHRITIS
     Dosage: RECEIVED 3 INFUSIONS, THE LAST 01/07/2009
     Dates: start: 20090101
  2. ATENOLOL [Concomitant]
  3. LOVASTATIN [Concomitant]
  4. FOSAMAX [Concomitant]
  5. METHADONE [Concomitant]
  6. LORTAB [Concomitant]
  7. VALIUM [Concomitant]
  8. PHENERGAN HCL [Concomitant]
  9. LORATADINE [Concomitant]
  10. MULTI-VITAMIN [Concomitant]
  11. VITAMIN C [Concomitant]
  12. VITAMIN D3 [Concomitant]
  13. VITAMIN B-12 [Concomitant]
  14. SUDAFED 12 HOUR [Concomitant]

REACTIONS (4)
  - ARTHRALGIA [None]
  - FATIGUE [None]
  - HYPOTENSION [None]
  - MALAISE [None]
